FAERS Safety Report 9461199 (Version 1)
Quarter: 2013Q3

REPORT INFORMATION
  Report Type: Spontaneous
  Country: US (occurrence: None)
  Receive Date: 20130814
  Receipt Date: 20130814
  Transmission Date: 20140515
  Serious: Yes (Other)
  Sender: FDA-Public Use
  Company Number: None

PATIENT
  Age: 24 Year
  Sex: Male
  Weight: 65.32 kg

DRUGS (2)
  1. STRIBILD [Suspect]
     Indication: HIV INFECTION
     Dosage: 30 PILLS
     Route: 048
     Dates: start: 20130704, end: 20130729
  2. LAMICTAL [Concomitant]

REACTIONS (6)
  - Viral load increased [None]
  - Product packaging issue [None]
  - Wrong drug administered [None]
  - Product colour issue [None]
  - Product shape issue [None]
  - Product label on wrong product [None]
